FAERS Safety Report 4286519-5 (Version None)
Quarter: 2004Q1

REPORT INFORMATION
  Report Type: 
  Country: None (occurrence: None)
  Receive Date: 20040204
  Receipt Date: 20040126
  Transmission Date: 20041129
  Serious: Yes (Hospitalization)
  Sender: FDA-Public Use
  Company Number: 2004005823

PATIENT
  Age: 68 Year
  Sex: Male

DRUGS (3)
  1. OXYTETRACYCLINE (OXYTETRACYCLINE) [Suspect]
     Indication: LOWER RESPIRATORY TRACT INFECTION
     Dates: start: 20040101
  2. SALBUTAMOL SULPHATE (SALBUTAMOL SULPHATE) [Suspect]
     Indication: ASTHMA
     Dosage: INHALATION
     Route: 055
  3. AMOXICILLIN TRIHYDRATE [Concomitant]

REACTIONS (5)
  - ANOXIA [None]
  - BLOOD GASES ABNORMAL [None]
  - BRONCHOSPASM [None]
  - DRUG INTERACTION [None]
  - LOSS OF CONSCIOUSNESS [None]
